FAERS Safety Report 23581707 (Version 2)
Quarter: 2025Q3

REPORT INFORMATION
  Report Type: Report from Study
  Country: EG (occurrence: EG)
  Receive Date: 20240229
  Receipt Date: 20250728
  Transmission Date: 20251020
  Serious: No
  Sender: SANDOZ
  Company Number: EG-002147023-NVSC2022EG185402

PATIENT
  Age: 5 Year
  Sex: Female
  Weight: 21 kg

DRUGS (12)
  1. OMNITROPE [Suspect]
     Active Substance: SOMATROPIN
     Dosage: 0.6 MG, QD
     Route: 058
  2. OMNITROPE [Suspect]
     Active Substance: SOMATROPIN
     Dosage: 0.8 MG, QD
     Route: 058
     Dates: start: 20210626
  3. OMNITROPE [Suspect]
     Active Substance: SOMATROPIN
     Indication: Growth hormone deficiency
     Dosage: 0.4 MG, QD
     Route: 058
     Dates: start: 20210620
  4. OMNITROPE [Suspect]
     Active Substance: SOMATROPIN
     Dosage: 0.5 MG, QD
     Route: 058
  5. OMNITROPE [Suspect]
     Active Substance: SOMATROPIN
     Dosage: 0.8 MG, QD ( FOR 3 DAYS)
     Route: 058
  6. OMNITROPE [Suspect]
     Active Substance: SOMATROPIN
     Indication: Growth hormone deficiency
     Dosage: 0.8 MG, QD
     Route: 058
     Dates: start: 20221005
  7. Digenorm [Concomitant]
     Indication: Malnutrition
     Dosage: 2.5 CENTIMETRE, BID
     Route: 048
     Dates: start: 20210620
  8. FOLIC ACID [Concomitant]
     Active Substance: FOLIC ACID
     Indication: Multi-vitamin deficiency
     Dosage: UNK, QD
     Route: 048
     Dates: start: 202105
  9. IRON [Concomitant]
     Active Substance: IRON
     Indication: Nutritional supplementation
     Dosage: (ONE TEASPOONFUL) QD
     Route: 048
     Dates: start: 20210620
  10. IRON [Concomitant]
     Active Substance: IRON
     Route: 048
     Dates: start: 202105
  11. OSTEOCARE [Concomitant]
     Active Substance: CALCIUM\CHOLECALCIFEROL\MAGNESIUM\ZINC
     Indication: Multi-vitamin deficiency
     Dosage: UNK, QD
     Route: 048
     Dates: start: 202105
  12. PENTASA [Concomitant]
     Active Substance: MESALAMINE
     Indication: Colitis ulcerative
     Route: 048
     Dates: start: 202305

REACTIONS (16)
  - Weight increased [Not Recovered/Not Resolved]
  - Cyanosis [Recovered/Resolved]
  - Injection site haemorrhage [Recovered/Resolved]
  - Injection site pain [Recovered/Resolved]
  - Drug ineffective [Not Recovered/Not Resolved]
  - Needle issue [Unknown]
  - Product odour abnormal [Recovered/Resolved]
  - Device malfunction [Not Recovered/Not Resolved]
  - Product preparation error [Not Recovered/Not Resolved]
  - Poor quality product administered [Recovered/Resolved]
  - Multiple use of single-use product [Recovered/Resolved]
  - Wrong technique in product usage process [Not Recovered/Not Resolved]
  - Off label use [Not Recovered/Not Resolved]
  - Expired device used [Not Recovered/Not Resolved]
  - Wrong technique in device usage process [Not Recovered/Not Resolved]
  - Product availability issue [Not Recovered/Not Resolved]

NARRATIVE: CASE EVENT DATE: 20210601
